FAERS Safety Report 4662266-2 (Version None)
Quarter: 2005Q2

REPORT INFORMATION
  Report Type: 
  Country: None (occurrence: None)
  Receive Date: 20050512
  Receipt Date: 20050428
  Transmission Date: 20051028
  Serious: Yes (Other)
  Sender: FDA-Public Use
  Company Number: 2005-0008208

PATIENT
  Age: 36 Year
  Sex: Male
  Weight: 74.3899 kg

DRUGS (8)
  1. TENOFOVIR DISOPROXIL FUMARATE(TENOFOVIR DISOPROXIL FUMARATE (TENOFOVIR [Suspect]
     Indication: HIV INFECTION
     Dosage: 300 MG, 1 IN 1 D, ORAL
     Route: 048
     Dates: start: 20040105, end: 20040321
  2. KALETRA [Suspect]
     Indication: HIV INFECTION
     Dosage: 500 MG, 2 IN 1 D
     Dates: start: 20040105, end: 20050321
  3. LAMIVUDINE [Suspect]
     Indication: HIV INFECTION
     Dosage: 150 MG, 2 IN 1 D
     Dates: start: 20050105, end: 20050321
  4. RIFABUTIN (RIFABUTIN) [Suspect]
     Indication: TUBERCULOSIS
     Dosage: 150 MG, 3 IN 1 WK
     Dates: start: 20050215, end: 20050321
  5. ISONIAZID [Suspect]
     Indication: TUBERCULOSIS
     Dosage: 300 MG, 1 IN 1 D
     Dates: start: 20050215, end: 20050321
  6. PYRAZINAMIDE [Suspect]
     Indication: TUBERCULOSIS
     Dosage: 1750 MG, 1 IN 1 D
     Dates: start: 20050215, end: 20050321
  7. EMB (ETHAMBUTOL) [Suspect]
     Indication: TUBERCULOSIS
     Dosage: 1000 MG, 1 IN 1 D
     Dates: start: 20050215, end: 20050321
  8. VITAMIN B6 [Concomitant]

REACTIONS (1)
  - HEPATITIS [None]
